FAERS Safety Report 20316446 (Version 2)
Quarter: 2022Q1

REPORT INFORMATION
  Report Type: Spontaneous
  Country: US (occurrence: US)
  Receive Date: 20220110
  Receipt Date: 20220206
  Transmission Date: 20220424
  Serious: Yes (Other)
  Sender: FDA-Public Use
  Company Number: US-NOVARTISPH-NVSC2022US002918

PATIENT
  Sex: Female

DRUGS (3)
  1. ZOFRAN [Suspect]
     Active Substance: ONDANSETRON HYDROCHLORIDE
     Indication: Product used for unknown indication
     Route: 065
  2. PENICILLIN G SODIUM [Suspect]
     Active Substance: PENICILLIN G SODIUM
     Indication: Product used for unknown indication
     Route: 065
  3. ANECTINE [Suspect]
     Active Substance: SUCCINYLCHOLINE CHLORIDE
     Indication: Product used for unknown indication
     Route: 065

REACTIONS (11)
  - Coma [Unknown]
  - Anaphylactic reaction [Unknown]
  - Apnoea [Unknown]
  - Paralysis [Unknown]
  - Post transplant lymphoproliferative disorder [Unknown]
  - Rash [Unknown]
  - Anaesthesia [Unknown]
  - Depression [Unknown]
  - Decreased appetite [Unknown]
  - Feeling abnormal [Unknown]
  - Anxiety [Unknown]
